FAERS Safety Report 14924330 (Version 1)
Quarter: 2018Q2

REPORT INFORMATION
  Report Type: Report from Study
  Country: None (occurrence: GB)
  Receive Date: 20180522
  Receipt Date: 20180522
  Transmission Date: 20180711
  Serious: Yes (Hospitalization)
  Sender: FDA-Public Use
  Company Number: GB-ABBVIE-17K-167-2122511-00

PATIENT
  Sex: Male

DRUGS (3)
  1. DUODOPA [Suspect]
     Active Substance: CARBIDOPA\LEVODOPA
     Route: 050
  2. DUODOPA [Suspect]
     Active Substance: CARBIDOPA\LEVODOPA
     Route: 050
  3. DUODOPA [Suspect]
     Active Substance: CARBIDOPA\LEVODOPA
     Indication: PARKINSON^S DISEASE
     Dosage: 100ML CASSETTE ?1 CASSETTE DAILY
     Route: 050

REACTIONS (11)
  - Vomiting [Unknown]
  - Bedridden [Unknown]
  - Wrong technique in device usage process [Unknown]
  - Device occlusion [Unknown]
  - Device dislocation [Unknown]
  - Parkinson^s disease [Unknown]
  - Confusional state [Unknown]
  - Intentional medical device removal by patient [Unknown]
  - Dyskinesia [Unknown]
  - General physical health deterioration [Unknown]
  - Diarrhoea [Unknown]
